FAERS Safety Report 5504612-3 (Version None)
Quarter: 2007Q4

REPORT INFORMATION
  Report Type: 
  Country: None (occurrence: None)
  Receive Date: 20071101
  Receipt Date: 20071025
  Transmission Date: 20080405
  Serious: Yes (Other)
  Sender: FDA-Public Use
  Company Number: IT-BOEHRINGER INGELHEIM PHARMACEUTICALS, INC.-2007-BP-23317RO

PATIENT
  Age: 46 Year
  Sex: Male

DRUGS (20)
  1. ZIDOVUDINE [Suspect]
     Indication: ACQUIRED IMMUNODEFICIENCY SYNDROME
     Dates: start: 19860101
  2. LAMIVUDINE [Suspect]
     Indication: ACQUIRED IMMUNODEFICIENCY SYNDROME
     Dates: start: 19960901
  3. INDINIVIR SULFATE [Suspect]
     Indication: ACQUIRED IMMUNODEFICIENCY SYNDROME
     Dates: start: 19960901
  4. STAVUDINE [Suspect]
     Indication: ACQUIRED IMMUNODEFICIENCY SYNDROME
  5. NEVIRAPINE [Suspect]
     Indication: ACQUIRED IMMUNODEFICIENCY SYNDROME
  6. NELFINAVIR [Suspect]
     Indication: ACQUIRED IMMUNODEFICIENCY SYNDROME
  7. RITONAVIR [Suspect]
     Indication: ACQUIRED IMMUNODEFICIENCY SYNDROME
  8. AMPRENAVIR [Suspect]
     Indication: ACQUIRED IMMUNODEFICIENCY SYNDROME
  9. EFAVIRENZ [Suspect]
     Indication: ACQUIRED IMMUNODEFICIENCY SYNDROME
  10. TENOFOVIR DISOPROXIL FUMARATE [Suspect]
     Indication: ACQUIRED IMMUNODEFICIENCY SYNDROME
  11. DIDANOSINE [Suspect]
     Indication: ACQUIRED IMMUNODEFICIENCY SYNDROME
  12. RITONAVIR-BOOSTED FOSAMPRENAVIR [Suspect]
     Indication: ACQUIRED IMMUNODEFICIENCY SYNDROME
  13. EXPERIMENTAL INTEGRASE INHIBITOR (L-870812) OR PLACEBO [Suspect]
     Indication: ACQUIRED IMMUNODEFICIENCY SYNDROME
  14. AZITHROMYCIN [Concomitant]
     Indication: MYCOBACTERIUM AVIUM COMPLEX INFECTION
     Dates: start: 19961001
  15. ETHAMBUTOL HCL [Concomitant]
     Indication: MYCOBACTERIUM AVIUM COMPLEX INFECTION
     Dates: start: 19961001
  16. AMIKACIN [Concomitant]
     Indication: MYCOBACTERIUM AVIUM COMPLEX INFECTION
     Dates: start: 19961001
  17. CO-TRIMOXAZOLE [Concomitant]
     Indication: PNEUMOCYSTIS JIROVECI INFECTION
     Dates: start: 20000301
  18. AMPHOTERICIN B [Concomitant]
     Indication: VISCERAL LEISHMANIASIS
     Route: 042
     Dates: start: 20050801, end: 20051101
  19. PENTAMIDINE ISETHIONATE [Concomitant]
     Indication: VISCERAL LEISHMANIASIS
     Dates: start: 20060101
  20. MILTEFOSINE [Concomitant]
     Indication: VISCERAL LEISHMANIASIS
     Route: 048

REACTIONS (4)
  - IRIDOCYCLITIS [None]
  - KAPOSI'S SARCOMA [None]
  - MYCOBACTERIUM AVIUM COMPLEX INFECTION [None]
  - VISCERAL LEISHMANIASIS [None]
